FAERS Safety Report 15667899 (Version 1)
Quarter: 2018Q4

REPORT INFORMATION
  Report Type: Spontaneous
  Country: US (occurrence: US)
  Receive Date: 20181128
  Receipt Date: 20181128
  Transmission Date: 20190205
  Serious: No
  Sender: FDA-Public Use
  Company Number: US-009507513-1811USA000027

PATIENT
  Sex: Female

DRUGS (5)
  1. ZEPATIER [Suspect]
     Active Substance: ELBASVIR\GRAZOPREVIR
     Indication: HEPATITIS C
     Dosage: DOSE REPORTED AS 50-100MG, DAILY
     Route: 048
     Dates: start: 201806
  2. SOMA [Concomitant]
     Active Substance: CARISOPRODOL
     Route: 048
  3. OXYCONTIN [Concomitant]
     Active Substance: OXYCODONE HYDROCHLORIDE
     Route: 048
  4. LORAZEPAM. [Concomitant]
     Active Substance: LORAZEPAM
     Route: 048
  5. ESTRADIOL. [Concomitant]
     Active Substance: ESTRADIOL
     Route: 048

REACTIONS (2)
  - Urine output increased [Unknown]
  - Product dose omission [Unknown]

NARRATIVE: CASE EVENT DATE: 2018
